FAERS Safety Report 7821882-7 (Version None)
Quarter: 2011Q4

REPORT INFORMATION
  Report Type: 
  Country: None (occurrence: None)
  Receive Date: 20111018
  Receipt Date: 20110525
  Transmission Date: 20120403
  Serious: No
  Sender: FDA-Public Use
  Company Number: US-ASTRAZENECA-2010SE36333

PATIENT
  Age: 73 Year
  Sex: Female

DRUGS (3)
  1. CELESTONE [Concomitant]
     Dosage: ONCE PER MONTH
  2. SYMBICORT [Suspect]
     Indication: CHRONIC OBSTRUCTIVE PULMONARY DISEASE
     Dosage: 160/ 4.5 MCG, BID
     Route: 055
     Dates: start: 20100101
  3. SYMBICORT [Suspect]
     Indication: ASTHMA
     Dosage: 160/ 4.5 MCG, BID
     Route: 055
     Dates: start: 20100101

REACTIONS (5)
  - DYSPNOEA [None]
  - DRUG DOSE OMISSION [None]
  - MALAISE [None]
  - RESTLESS LEGS SYNDROME [None]
  - DRUG INEFFECTIVE [None]
